FAERS Safety Report 20603770 (Version 1)
Quarter: 2022Q1

REPORT INFORMATION
  Report Type: Spontaneous
  Country: US (occurrence: None)
  Receive Date: 20220316
  Receipt Date: 20220316
  Transmission Date: 20220423
  Serious: Yes (Hospitalization)
  Sender: FDA-Public Use
  Company Number: None

PATIENT
  Age: 64 Year
  Sex: Male
  Weight: 186 kg

DRUGS (1)
  1. ALLOPURINOL [Suspect]
     Active Substance: ALLOPURINOL
     Indication: Gout
     Dosage: 150 MG EVERY DAY PO?
     Route: 048
     Dates: start: 20210820, end: 20211228

REACTIONS (9)
  - Rash [None]
  - Blister [None]
  - Scab [None]
  - Pain [None]
  - Dyspnoea [None]
  - Chest discomfort [None]
  - Dermatitis bullous [None]
  - Urticaria [None]
  - Adverse drug reaction [None]

NARRATIVE: CASE EVENT DATE: 20211228
